FAERS Safety Report 7996439-8 (Version None)
Quarter: 2011Q4

REPORT INFORMATION
  Report Type: 
  Country: None (occurrence: None)
  Receive Date: 20111220
  Receipt Date: 20111216
  Transmission Date: 20120403
  Serious: Yes (Death)
  Sender: FDA-Public Use
  Company Number: BG-ASTRAZENECA-2011SE76280

PATIENT
  Age: 68 Year
  Sex: Male

DRUGS (5)
  1. ZILLT [Concomitant]
     Route: 048
     Dates: start: 20101101
  2. CRESTOR [Suspect]
     Indication: DYSLIPIDAEMIA
     Route: 048
     Dates: start: 20090101
  3. NORVASC [Concomitant]
     Route: 048
     Dates: start: 20080101
  4. PRESTARIUM [Concomitant]
     Route: 048
     Dates: start: 20080101
  5. ISODINIT [Concomitant]
     Route: 048
     Dates: start: 20080101

REACTIONS (1)
  - CEREBROVASCULAR ACCIDENT [None]
